FAERS Safety Report 6295356-1 (Version None)
Quarter: 2009Q3

REPORT INFORMATION
  Report Type: 
  Country: None (occurrence: None)
  Receive Date: 20090803
  Receipt Date: 20090727
  Transmission Date: 20100115
  Serious: Yes (Hospitalization)
  Sender: FDA-Public Use
  Company Number: FR-SANOFI-SYNTHELABO-A02200901950

PATIENT
  Sex: Female

DRUGS (1)
  1. PLAQUENIL [Suspect]
     Indication: CUTANEOUS LUPUS ERYTHEMATOSUS
     Route: 048
     Dates: start: 20030101, end: 20090627

REACTIONS (7)
  - ATAXIA [None]
  - BRAIN STEM STROKE [None]
  - DYSARTHRIA [None]
  - DYSPHAGIA [None]
  - DYSPHONIA [None]
  - GAIT DISTURBANCE [None]
  - HEMIPARESIS [None]
